FAERS Safety Report 14156030 (Version 8)
Quarter: 2019Q2

REPORT INFORMATION
  Report Type: Report from Study
  Country: None (occurrence: US)
  Receive Date: 20171103
  Receipt Date: 20190628
  Transmission Date: 20190711
  Serious: Yes (Hospitalization, Congenital Anomaly, Other)
  Sender: FDA-Public Use
  Company Number: US-ABBVIE-17K-163-1912300-00

PATIENT
  Age: 48 Year
  Sex: Female
  Weight: 108.96 kg

DRUGS (2)
  1. CORTISONE [Concomitant]
     Active Substance: CORTISONE\HYDROCORTISONE
     Indication: PRODUCT USED FOR UNKNOWN INDICATION
  2. HUMIRA [Suspect]
     Active Substance: ADALIMUMAB
     Indication: RHEUMATOID ARTHRITIS
     Route: 058

REACTIONS (14)
  - Pain in extremity [Not Recovered/Not Resolved]
  - Abdominal adhesions [Recovered/Resolved]
  - Memory impairment [Not Recovered/Not Resolved]
  - Hip fracture [Not Recovered/Not Resolved]
  - Inflammation [Not Recovered/Not Resolved]
  - Muscular weakness [Not Recovered/Not Resolved]
  - Intestinal obstruction [Unknown]
  - Spinal stenosis [Recovered/Resolved]
  - Feeling hot [Unknown]
  - Injection site pain [Not Recovered/Not Resolved]
  - Rheumatoid arthritis [Not Recovered/Not Resolved]
  - Musculoskeletal pain [Unknown]
  - Neuralgia [Not Recovered/Not Resolved]
  - Peripheral swelling [Unknown]

NARRATIVE: CASE EVENT DATE: 201309
